FAERS Safety Report 11503030 (Version 9)
Quarter: 2016Q2

REPORT INFORMATION
  Report Type: Report from Study
  Country: JP (occurrence: JP)
  Receive Date: 20150914
  Receipt Date: 20160527
  Transmission Date: 20160815
  Serious: Yes (Death, Hospitalization, Other)
  Sender: FDA-Public Use
  Company Number: JP-009507513-1509JPN006010

PATIENT
  Age: 67 Year
  Sex: Female
  Weight: 47 kg

DRUGS (15)
  1. HALFDIGOXIN [Suspect]
     Active Substance: DIGOXIN
     Indication: RIGHT VENTRICULAR FAILURE
  2. WARFARIN [Concomitant]
     Active Substance: WARFARIN
     Indication: ATRIAL FIBRILLATION
     Dosage: 2 MG, 1 DAY,
     Route: 048
     Dates: start: 2009, end: 20150902
  3. CEFTRIAXONE SODIUM. [Concomitant]
     Active Substance: CEFTRIAXONE SODIUM
     Indication: URINARY TRACT INFECTION
     Dosage: 2 G, 1 DAY
     Route: 041
     Dates: start: 20150831, end: 20150902
  4. BISOPROLOL FUMARATE. [Concomitant]
     Active Substance: BISOPROLOL FUMARATE
     Dosage: 1.25 MG, 1 DAY
     Route: 048
     Dates: end: 20150902
  5. REBETOL [Suspect]
     Active Substance: RIBAVIRIN
     Indication: HEPATIC CIRRHOSIS
     Dosage: 200 MG IN THE MORNING AND 400 MG IN THE EVENING
     Route: 048
     Dates: start: 20150818, end: 20150902
  6. URSO [Concomitant]
     Active Substance: URSODIOL
     Indication: HEPATITIS C
     Dosage: 1800 MG, 1 DAY, DIVIDED DOSE FREQUENCY UNKNOWN
     Route: 048
     Dates: start: 2009
  7. WARFARIN [Concomitant]
     Active Substance: WARFARIN
     Indication: RIGHT VENTRICULAR FAILURE
  8. MAINTATE [Concomitant]
     Active Substance: BISOPROLOL FUMARATE
     Indication: ATRIAL FIBRILLATION
     Dosage: 1.25 MG, 1 DAY / DIVIDED DOSE FREQUENCY UNKNOWN
     Route: 048
     Dates: start: 2009
  9. SOVALDI [Suspect]
     Active Substance: SOFOSBUVIR
     Indication: HEPATIC CIRRHOSIS
     Dosage: 200 MG TWICE A DAY
     Route: 048
     Dates: start: 20150818, end: 20150902
  10. NEXIUM [Concomitant]
     Active Substance: ESOMEPRAZOLE MAGNESIUM
     Indication: GASTROOESOPHAGEAL REFLUX DISEASE
     Dosage: 20 MG, 1 DAY
     Route: 048
     Dates: start: 20150303, end: 20150902
  11. HALFDIGOXIN [Suspect]
     Active Substance: DIGOXIN
     Indication: ATRIAL FIBRILLATION
     Dosage: 0.125 MG, 1 DAY
     Route: 048
     Dates: start: 20140801, end: 20150902
  12. SINGULAIR [Concomitant]
     Active Substance: MONTELUKAST SODIUM
     Indication: ASTHMA
     Dosage: 10 MG, 1 DAY
     Route: 048
     Dates: start: 20150528, end: 20150902
  13. MUCOSAL [Concomitant]
     Indication: ASTHMA
     Dosage: 45 MG, 1 DAY / DIVIDED DOSE FREQUENCY UNKNOWN
     Route: 048
     Dates: start: 20150523
  14. DIART [Concomitant]
     Active Substance: AZOSEMIDE
     Indication: CARDIAC FAILURE
     Dosage: 45 MG, 1 DAY
     Route: 048
     Dates: start: 20150609, end: 20150902
  15. AMBROXOL HYDROCHLORIDE [Concomitant]
     Active Substance: AMBROXOL HYDROCHLORIDE
     Dosage: 45 MG, 1 DAY
     Route: 048
     Dates: end: 20150902

REACTIONS (13)
  - Ventricular tachycardia [Fatal]
  - Hypokalaemia [Not Recovered/Not Resolved]
  - Decreased appetite [Recovering/Resolving]
  - Mobility decreased [Unknown]
  - Electrocardiogram QT prolonged [Unknown]
  - Ventricular fibrillation [Fatal]
  - Diarrhoea [Recovering/Resolving]
  - Arthralgia [Recovering/Resolving]
  - Hyperbilirubinaemia [Recovered/Resolved]
  - Cardiac arrest [Fatal]
  - Urinary tract infection [Recovering/Resolving]
  - Torsade de pointes [Fatal]
  - Pyrexia [Recovering/Resolving]

NARRATIVE: CASE EVENT DATE: 2015
